FAERS Safety Report 5788281-3 (Version None)
Quarter: 2008Q2

REPORT INFORMATION
  Report Type: 
  Country: None (occurrence: None)
  Receive Date: 20080625
  Receipt Date: 20080618
  Transmission Date: 20081010
  Serious: Yes (Death)
  Sender: FDA-Public Use
  Company Number: JP-MERCK-0806USA07722

PATIENT
  Age: 87 Year
  Sex: Female

DRUGS (6)
  1. FOSAMAX [Suspect]
     Indication: OSTEOPOROSIS
     Route: 048
     Dates: start: 20051013, end: 20060720
  2. KALGUT [Suspect]
     Indication: CARDIAC FAILURE CHRONIC
     Route: 048
     Dates: start: 20050428, end: 20071109
  3. ONEALFA [Concomitant]
     Indication: OSTEOPOROSIS
     Route: 048
     Dates: start: 20051013, end: 20060720
  4. DOPS [Suspect]
     Indication: PARKINSON'S DISEASE
     Route: 048
     Dates: start: 20040617, end: 20071109
  5. CARBIDOPA AND LEVODOPA [Suspect]
     Indication: PARKINSON'S DISEASE
     Route: 048
     Dates: start: 20040617, end: 20071109
  6. SODIUM FERROUS CITRATE [Suspect]
     Indication: IRON DEFICIENCY
     Route: 048
     Dates: start: 20041211, end: 20071109

REACTIONS (1)
  - CARDIAC FAILURE CHRONIC [None]
